FAERS Safety Report 7981164-X (Version None)
Quarter: 2011Q4

REPORT INFORMATION
  Report Type: 
  Country: None (occurrence: None)
  Receive Date: 20111129
  Receipt Date: 20110610
  Transmission Date: 20120403
  Serious: Yes (Other)
  Sender: FDA-Public Use
  Company Number: PHHY2011US26231

PATIENT
  Sex: Female

DRUGS (2)
  1. LAMISIL [Suspect]
     Indication: ONYCHOMYCOSIS
     Dosage: ORAL
     Route: 048
  2. MULTIVITAMINS, PLAIN (NO INGREDIENTS/SUBSTANCES) [Concomitant]

REACTIONS (2)
  - WEIGHT DECREASED [None]
  - AGEUSIA [None]
